FAERS Safety Report 6428570-2 (Version None)
Quarter: 2009Q4

REPORT INFORMATION
  Report Type: 
  Country: None (occurrence: None)
  Receive Date: 20091104
  Receipt Date: 20091104
  Transmission Date: 20100525
  Serious: Yes (Hospitalization)
  Sender: FDA-Public Use
  Company Number: None

PATIENT
  Age: 63 Year

DRUGS (1)
  1. HALOPERIDOL [Suspect]
     Dosage: 5 MG HS PO
     Route: 048
     Dates: start: 20080808, end: 20080909

REACTIONS (5)
  - APHASIA [None]
  - ASTHENIA [None]
  - DYSPHAGIA [None]
  - FALL [None]
  - PARKINSONISM [None]
